FAERS Safety Report 24706474 (Version 1)
Quarter: 2024Q4

REPORT INFORMATION
  Report Type: Spontaneous
  Country: PL (occurrence: PL)
  Receive Date: 20241206
  Receipt Date: 20241206
  Transmission Date: 20250115
  Serious: Yes (Death)
  Sender: EMD SERONO INC
  Company Number: PL-Merck Healthcare KGaA-2024064465

PATIENT
  Age: 70 Year
  Sex: Female
  Weight: 63 kg

DRUGS (1)
  1. TEPOTINIB [Suspect]
     Active Substance: TEPOTINIB
     Indication: Lung adenocarcinoma

REACTIONS (5)
  - Disease progression [Fatal]
  - Nausea [Unknown]
  - Vomiting [Unknown]
  - Blood creatinine increased [Unknown]
  - Decreased appetite [Unknown]

NARRATIVE: CASE EVENT DATE: 20240920
